FAERS Safety Report 5792277-5 (Version None)
Quarter: 2008Q2

REPORT INFORMATION
  Report Type: 
  Country: None (occurrence: None)
  Receive Date: 20080626
  Receipt Date: 20080619
  Transmission Date: 20081010
  Serious: Yes (Hospitalization, Other)
  Sender: FDA-Public Use
  Company Number: US-ELI_LILLY_AND_COMPANY-US200806004656

PATIENT
  Sex: Female

DRUGS (7)
  1. HUMALOG [Suspect]
     Dates: start: 20080501
  2. HUMULIN N [Suspect]
     Dates: start: 20000101, end: 20030101
  3. HUMULIN R [Suspect]
     Dates: start: 20030101, end: 20070101
  4. LANTUS [Concomitant]
  5. NOVOLOG [Concomitant]
  6. NOVOLOG MIX 70/30 [Concomitant]
  7. IMMUNOSUPPRESSIVE AGENTS [Concomitant]

REACTIONS (11)
  - ADVERSE DRUG REACTION [None]
  - ALOPECIA [None]
  - BLOOD GLUCOSE DECREASED [None]
  - CATARACT [None]
  - CONFUSIONAL STATE [None]
  - DIZZINESS [None]
  - HAEMORRHAGE [None]
  - HAIR GROWTH ABNORMAL [None]
  - RENAL TRANSPLANT [None]
  - SKIN CANCER [None]
  - TOOTH DISORDER [None]
